FAERS Safety Report 9159365 (Version 1)
Quarter: 2013Q1

REPORT INFORMATION
  Report Type: Spontaneous
  Country: JP (occurrence: None)
  Receive Date: 20130212
  Receipt Date: 20130212
  Transmission Date: 20140127
  Serious: Yes (Other)
  Sender: FDA-Public Use
  Company Number: TCI2013A00715

PATIENT
  Age: 84 Year
  Sex: Male

DRUGS (1)
  1. ACTOS [Suspect]
     Route: 048
     Dates: start: 200411, end: 201202

REACTIONS (1)
  - Stevens-Johnson syndrome [None]
